FAERS Safety Report 8193925-5 (Version None)
Quarter: 2012Q1

REPORT INFORMATION
  Report Type: 
  Country: None (occurrence: None)
  Receive Date: 20120308
  Receipt Date: 20120302
  Transmission Date: 20120608
  Serious: Yes (Hospitalization, Other)
  Sender: FDA-Public Use
  Company Number: US-ACTELION-A-NJ2012-60729

PATIENT

DRUGS (6)
  1. TRACLEER [Suspect]
     Indication: PULMONARY ARTERIAL HYPERTENSION
     Dosage: 1/2 TAB TWICE DAILY
     Route: 048
     Dates: start: 20120101, end: 20120101
  2. TRACLEER [Suspect]
     Dosage: UNK
     Route: 048
     Dates: start: 20090918
  3. REVATIO [Concomitant]
  4. VENTAVIS [Suspect]
     Indication: PULMONARY ARTERIAL HYPERTENSION
     Dosage: UNK
     Route: 055
     Dates: start: 20091116
  5. TRACLEER [Suspect]
     Dosage: 1 TAB BID
     Route: 048
     Dates: start: 20120101
  6. COUMADIN [Concomitant]

REACTIONS (2)
  - CARDIAC VALVE DISEASE [None]
  - HEART VALVE REPLACEMENT [None]
